FAERS Safety Report 7382112-6 (Version None)
Quarter: 2011Q1

REPORT INFORMATION
  Report Type: 
  Country: None (occurrence: None)
  Receive Date: 20110329
  Receipt Date: 20110317
  Transmission Date: 20110831
  Serious: Yes (Hospitalization, Other)
  Sender: FDA-Public Use
  Company Number: PHEH2008US04164

PATIENT
  Sex: Male
  Weight: 86.168 kg

DRUGS (63)
  1. ZOMETA [Suspect]
     Dosage: 4MG
  2. AXID [Concomitant]
  3. TRIMETHOBENZAMIDE HCL [Concomitant]
  4. FAMVIR                                  /NET/ [Concomitant]
  5. PROCHLORPERAZINE [Concomitant]
  6. AUGMENTIN '125' [Concomitant]
  7. BACTRIM DS [Concomitant]
  8. VANCOMYCIN [Concomitant]
  9. LYRICA [Concomitant]
  10. CHEMOTHERAPEUTICS NOS [Concomitant]
  11. FOSAMAX [Concomitant]
  12. TOBRAMYCIN [Concomitant]
  13. REMERON [Concomitant]
  14. LORAZEPAM [Concomitant]
  15. FUROSEMIDE [Concomitant]
  16. ALLOPURINOL [Concomitant]
  17. BACTROBAN                               /NET/ [Concomitant]
  18. COMPAZINE [Concomitant]
  19. AREDIA [Suspect]
     Dosage: 90MG
     Route: 042
  20. CELEXA [Concomitant]
  21. TEMAZEPAM [Concomitant]
  22. SILVER SULFADIAZINE [Concomitant]
  23. KEFLEX [Concomitant]
  24. BENADRYL ^ACHE^ [Concomitant]
  25. MOXIFLOXACIN [Concomitant]
  26. POTASSIUM PHOSPHATES [Concomitant]
  27. NEULASTA [Concomitant]
  28. FOLIC ACID [Concomitant]
  29. CIPROFLOXACIN [Concomitant]
  30. MIACALCIN [Concomitant]
  31. FE-TINIC FORTE [Concomitant]
  32. LEVAQUIN [Concomitant]
  33. THALIDOMIDE [Concomitant]
  34. ACYCLOVIR [Concomitant]
  35. ZITHROMAX [Concomitant]
  36. TOPROL-XL [Concomitant]
  37. AMOXICILLIN [Concomitant]
  38. TORADOL [Concomitant]
  39. OXYCODONE HCL AND ACETAMINOPHEN [Concomitant]
  40. PRILOSEC [Concomitant]
  41. K-DUR [Concomitant]
  42. PRINIVIL [Concomitant]
  43. DEXAMETHASONE [Concomitant]
  44. DURAGESIC-50 [Concomitant]
  45. VIAGRA [Concomitant]
  46. ANDROGEL [Concomitant]
  47. AMBIEN [Concomitant]
  48. METHADONE [Concomitant]
  49. MORPHINE [Concomitant]
  50. MELPHALAN [Concomitant]
  51. LUNESTA [Concomitant]
  52. AVELOX [Concomitant]
  53. ACETAMINOPHEN [Concomitant]
  54. FLUCONAZOLE [Concomitant]
  55. VORINOSTAT [Concomitant]
  56. NEURONTIN [Concomitant]
  57. WELLBUTRIN SR [Concomitant]
  58. KYTRIL [Concomitant]
  59. OXYCONTIN [Concomitant]
  60. IBUPROFEN [Concomitant]
  61. DIFLUCAN [Concomitant]
  62. LORTAB [Concomitant]
  63. VELCADE [Concomitant]

REACTIONS (49)
  - HEPATIC STEATOSIS [None]
  - LUMBAR RADICULOPATHY [None]
  - DEPRESSION [None]
  - INTERSTITIAL LUNG DISEASE [None]
  - SPINAL OSTEOARTHRITIS [None]
  - ARTHROPATHY [None]
  - CONSTIPATION [None]
  - CONFUSIONAL STATE [None]
  - ABDOMINAL PAIN [None]
  - LIMB DEFORMITY [None]
  - DYSPNOEA [None]
  - ANHEDONIA [None]
  - DISABILITY [None]
  - PAIN IN EXTREMITY [None]
  - NEUTROPENIA [None]
  - WOUND [None]
  - INCONTINENCE [None]
  - DECUBITUS ULCER [None]
  - ATELECTASIS [None]
  - OSTEONECROSIS OF JAW [None]
  - INJURY [None]
  - BONE DISORDER [None]
  - INTERVERTEBRAL DISC PROTRUSION [None]
  - OSTEOPOROSIS [None]
  - WEIGHT DECREASED [None]
  - CALCULUS URETERIC [None]
  - RENAL FAILURE ACUTE [None]
  - CARDIOMEGALY [None]
  - NEPHROLITHIASIS [None]
  - NEUROPATHY PERIPHERAL [None]
  - DECREASED APPETITE [None]
  - DIARRHOEA [None]
  - PNEUMONIA [None]
  - ASTHENIA [None]
  - FATIGUE [None]
  - FALL [None]
  - LOWER LIMB FRACTURE [None]
  - HYPONATRAEMIA [None]
  - HEPATOMEGALY [None]
  - DENTAL PROSTHESIS USER [None]
  - ANAEMIA [None]
  - HYPERCALCAEMIA [None]
  - PAIN [None]
  - ANXIETY [None]
  - COMPRESSION FRACTURE [None]
  - OSTEOPENIA [None]
  - BACK PAIN [None]
  - NERVE ROOT INJURY LUMBAR [None]
  - GAIT DISTURBANCE [None]
